FAERS Safety Report 8444811-4 (Version None)
Quarter: 2012Q2

REPORT INFORMATION
  Report Type: 
  Country: None (occurrence: None)
  Receive Date: 20120618
  Receipt Date: 20120611
  Transmission Date: 20120825
  Serious: Yes (Other)
  Sender: FDA-Public Use
  Company Number: PHHY2012FR051124

PATIENT
  Age: 56 Year
  Sex: Female

DRUGS (3)
  1. TEGRETOL [Suspect]
     Indication: BIPOLAR DISORDER
     Route: 048
     Dates: start: 20120201, end: 20120301
  2. TERCIAN [Concomitant]
     Dosage: 25 MG, DAILY
  3. LORAZEPAM [Concomitant]
     Dosage: 2.5 MG, BID

REACTIONS (2)
  - COLITIS MICROSCOPIC [None]
  - DIARRHOEA [None]
